FAERS Safety Report 9306859 (Version 1)
Quarter: 2013Q2

REPORT INFORMATION
  Report Type: Spontaneous
  Country: US (occurrence: US)
  Receive Date: 20130523
  Receipt Date: 20130523
  Transmission Date: 20140414
  Serious: Yes (Other)
  Sender: FDA-Public Use
  Company Number: CHPA2013US008413

PATIENT
  Age: 70 Year
  Sex: Female

DRUGS (5)
  1. EXCEDRIN MIGRAINE [Suspect]
     Dosage: 1 DF, UNK
     Route: 048
  2. EXCEDRIN TENSION HEADACHE [Suspect]
     Indication: TENSION HEADACHE
     Dosage: 1 DF, QW
     Route: 048
     Dates: start: 2003
  3. EXCEDRIN ES BACK + BODY [Suspect]
     Indication: FIBROMYALGIA
     Dosage: 1 DF, ONCE OR TWICE A MONTH
     Route: 048
  4. EXCEDRIN ES BACK + BODY [Suspect]
     Indication: ARTHRALGIA
  5. ALEVE [Concomitant]
     Indication: PAIN
     Dosage: UNK, UNK
     Route: 048

REACTIONS (1)
  - Fibromyalgia [Unknown]
